FAERS Safety Report 12433879 (Version 1)
Quarter: 2016Q2

REPORT INFORMATION
  Report Type: Spontaneous
  Country: FR (occurrence: FR)
  Receive Date: 20160603
  Receipt Date: 20160603
  Transmission Date: 20160815
  Serious: Yes (Life-Threatening)
  Sender: FDA-Public Use
  Company Number: FR-B. BRAUN MEDICAL INC.-1053209

PATIENT
  Age: 77 Year
  Sex: Female

DRUGS (15)
  1. AZACTAM [Suspect]
     Active Substance: AZTREONAM
     Route: 042
     Dates: start: 20160411, end: 20160418
  2. CALCIPARINE [Suspect]
     Active Substance: HEPARIN CALCIUM
     Route: 058
     Dates: start: 20160326, end: 20160418
  3. VOLTARENE (DICLOFENAC) [Concomitant]
  4. ESCITALOPRAM [Suspect]
     Active Substance: ESCITALOPRAM OXALATE
     Route: 048
     Dates: start: 20160418, end: 20160418
  5. ALLOPURINOL. [Suspect]
     Active Substance: ALLOPURINOL
     Route: 048
     Dates: start: 20160418, end: 20160418
  6. INEXIUM (ESOMEPRAZOLE) [Concomitant]
     Active Substance: ESOMEPRAZOLE
  7. SIMVASTATIN. [Concomitant]
     Active Substance: SIMVASTATIN
  8. CUBICIN [Suspect]
     Active Substance: DAPTOMYCIN
     Route: 042
     Dates: start: 20160418, end: 20160429
  9. PRAVASTATIN [Suspect]
     Active Substance: PRAVASTATIN\PRAVASTATIN SODIUM
     Route: 048
     Dates: start: 20160326, end: 20160418
  10. SERESTA (OXAZEPAM) [Concomitant]
     Active Substance: OXAZEPAM
  11. RIMACTAN (RIFAMPICIN) [Suspect]
     Active Substance: RIFAMPIN
     Route: 048
     Dates: start: 20160406, end: 20160408
  12. RIFADINE (RIFAMPICIN) [Suspect]
     Active Substance: RIFAMPIN
     Route: 042
     Dates: start: 20160408, end: 20160418
  13. IRBESARTAN AND HYDROCHLOROTHIAZIDE [Suspect]
     Active Substance: HYDROCHLOROTHIAZIDE\IRBESARTAN
     Route: 048
     Dates: start: 20160418, end: 20160418
  14. NEBIVOLOL. [Suspect]
     Active Substance: NEBIVOLOL
     Route: 048
     Dates: start: 20160418, end: 20160418
  15. METRONIDAZOLE. [Suspect]
     Active Substance: METRONIDAZOLE
     Route: 042
     Dates: start: 20160411, end: 20160418

REACTIONS (1)
  - Interstitial lung disease [Recovering/Resolving]
